FAERS Safety Report 15454139 (Version 4)
Quarter: 2018Q4

REPORT INFORMATION
  Report Type: Report from Study
  Country: CA (occurrence: CA)
  Receive Date: 20181002
  Receipt Date: 20181018
  Transmission Date: 20190204
  Serious: No
  Sender: FDA-Public Use
  Company Number: CA-ROCHE-2191448

PATIENT
  Age: 47 Year
  Sex: Female

DRUGS (1)
  1. OCREVUS [Suspect]
     Active Substance: OCRELIZUMAB
     Indication: RELAPSING-REMITTING MULTIPLE SCLEROSIS
     Dosage: 300 MG ON DAY 0 AND DAY 14 AND THEN 600 MG ;ONGOING: YES
     Route: 042
     Dates: start: 20180318

REACTIONS (5)
  - Cough [Unknown]
  - Fatigue [Unknown]
  - Throat irritation [Unknown]
  - Rhinorrhoea [Unknown]
  - Influenza [Recovering/Resolving]

NARRATIVE: CASE EVENT DATE: 20180922
